FAERS Safety Report 7750020-4 (Version None)
Quarter: 2011Q3

REPORT INFORMATION
  Report Type: 
  Country: None (occurrence: None)
  Receive Date: 20110914
  Receipt Date: 20110912
  Transmission Date: 20111222
  Serious: Yes (Hospitalization, Other)
  Sender: FDA-Public Use
  Company Number: LT-AMGEN-KDC422894

PATIENT
  Age: 70 Year
  Sex: Male

DRUGS (4)
  1. DENOSUMAB [Suspect]
     Indication: PROSTATE CANCER
     Dosage: UNK UNK, Q4WK
     Route: 058
     Dates: start: 20080314
  2. CALCIGRAN FORTE [Concomitant]
  3. TAMSULOSIN HYDROCHLORIDE [Concomitant]
  4. QUINAPRIL HCL [Concomitant]

REACTIONS (1)
  - OSTEOMYELITIS [None]
